FAERS Safety Report 13423271 (Version 1)
Quarter: 2017Q2

REPORT INFORMATION
  Report Type: Report from Study
  Country: DE (occurrence: DE)
  Receive Date: 20170410
  Receipt Date: 20170410
  Transmission Date: 20170830
  Serious: Yes (Death, Hospitalization)
  Sender: FDA-Public Use
  Company Number: PHHY2017DE021890

PATIENT
  Sex: Male
  Weight: 79 kg

DRUGS (13)
  1. BUDESONIDE. [Concomitant]
     Active Substance: BUDESONIDE
     Indication: CHRONIC OBSTRUCTIVE PULMONARY DISEASE
     Dosage: 1 DF, QD
     Route: 055
  2. VIANI [Concomitant]
     Active Substance: FLUTICASONE PROPIONATE\SALMETEROL XINAFOATE
     Indication: CHRONIC OBSTRUCTIVE PULMONARY DISEASE
     Dosage: 2 DF, BID
     Route: 055
  3. METOPROLOL SUCCINATE. [Concomitant]
     Active Substance: METOPROLOL SUCCINATE
     Indication: ATRIAL FIBRILLATION
     Dosage: 1 DF, BID
     Route: 048
  4. TORASEMID AAA-PHARMA [Concomitant]
     Indication: CARDIAC FAILURE
     Dosage: 1 DF, BID
     Route: 048
  5. METOHEXAL SUCC [Concomitant]
     Active Substance: METOPROLOL SUCCINATE
     Indication: CARDIAC FAILURE
     Dosage: 0.5 DF, BID
     Route: 048
  6. SPIRONOLACTONE A L [Concomitant]
     Active Substance: SPIRONOLACTONE
     Indication: CARDIAC FAILURE
     Dosage: 05 DF, QD
     Route: 048
  7. DIGITOXIN ^AWD^ [Concomitant]
     Indication: ATRIAL FIBRILLATION
     Dosage: 1 DF, QD
     Route: 048
  8. ENTRESTO [Suspect]
     Active Substance: SACUBITRIL\VALSARTAN
     Indication: CARDIAC FAILURE
     Dosage: 1 DF, BID (24 MG/26 MG)
     Route: 048
     Dates: start: 20160301, end: 20160330
  9. FALITHROM [Concomitant]
     Active Substance: PHENPROCOUMON
     Indication: ATRIAL FIBRILLATION
     Dosage: 1 DF, QD (ACCORDING TO INR)
     Route: 048
  10. BERODUAL N [Concomitant]
     Active Substance: FENOTEROL HYDROBROMIDE\IPRATROPIUM BROMIDE
     Indication: CHRONIC OBSTRUCTIVE PULMONARY DISEASE
     Dosage: 0.05 OT, UNK
     Route: 055
  11. ENTRESTO [Suspect]
     Active Substance: SACUBITRIL\VALSARTAN
     Dosage: 1 DF, BID (49 MG/ 51 MG)
     Route: 048
     Dates: start: 20160329
  12. PREDNIHEXAL [Concomitant]
     Active Substance: PREDNISOLONE ACETATE
     Indication: CHRONIC OBSTRUCTIVE PULMONARY DISEASE
     Dosage: 0.5 DF, BID
     Route: 048
  13. EKLIRA GENUAIR [Concomitant]
     Active Substance: ACLIDINIUM BROMIDE
     Indication: CHRONIC OBSTRUCTIVE PULMONARY DISEASE
     Dosage: 1 DF, BID
     Route: 055

REACTIONS (22)
  - Generalised oedema [Fatal]
  - Superior vena cava occlusion [Fatal]
  - Pleural effusion [Fatal]
  - Ascites [Fatal]
  - Hepatic cirrhosis [Fatal]
  - Bacterial test positive [Fatal]
  - Cyanosis [Fatal]
  - Respiratory failure [Fatal]
  - Red blood cell count increased [Unknown]
  - Cardiac failure [Fatal]
  - Orthopnoea [Fatal]
  - Stasis dermatitis [Fatal]
  - Dyspnoea [Fatal]
  - Chronic kidney disease [Fatal]
  - Hyperuricaemia [Fatal]
  - Pulmonary oedema [Fatal]
  - Tachypnoea [Fatal]
  - General physical health deterioration [Fatal]
  - Right ventricular failure [Fatal]
  - Hepatic congestion [Fatal]
  - Concomitant disease aggravated [Unknown]
  - Lymphocyte count decreased [Unknown]

NARRATIVE: CASE EVENT DATE: 20161103
